FAERS Safety Report 23285746 (Version 1)
Quarter: 2023Q4

REPORT INFORMATION
  Report Type: Report from Study
  Country: US (occurrence: US)
  Receive Date: 20231212
  Receipt Date: 20231212
  Transmission Date: 20240110
  Serious: Yes (Hospitalization)
  Sender: FDA-Public Use
  Company Number: US-ARGENX-2023-ARGX-US001339AA

PATIENT

DRUGS (1)
  1. VYVGART [Suspect]
     Active Substance: EFGARTIGIMOD ALFA-FCAB
     Indication: Myasthenia gravis
     Dosage: 10 MG/KG
     Route: 042
     Dates: start: 20230317

REACTIONS (15)
  - Kidney infection [Unknown]
  - Myasthenia gravis [Unknown]
  - Depression [Unknown]
  - Pyrexia [Unknown]
  - Chills [Unknown]
  - Nausea [Unknown]
  - Muscular weakness [Unknown]
  - COVID-19 [Recovering/Resolving]
  - Blood pressure decreased [Unknown]
  - Dizziness [Unknown]
  - Product storage error [Unknown]
  - Asthenia [Unknown]
  - Herpes zoster [Unknown]
  - Urinary tract infection [Unknown]
  - Nephrostomy [Unknown]

NARRATIVE: CASE EVENT DATE: 20230317
